FAERS Safety Report 6239437-7 (Version None)
Quarter: 2009Q2

REPORT INFORMATION
  Report Type: 
  Country: None (occurrence: None)
  Receive Date: 20090622
  Receipt Date: 20090619
  Transmission Date: 20091009
  Serious: Yes (Disabling)
  Sender: FDA-Public Use
  Company Number: GB-EISAI INC.-E2020-04790-SPO-GB

PATIENT
  Age: 85 Year
  Weight: 42.8 kg

DRUGS (5)
  1. ARICEPT [Suspect]
     Indication: DEMENTIA ALZHEIMER'S TYPE
     Route: 048
     Dates: start: 20090423, end: 20090521
  2. PRIADEL [Concomitant]
     Route: 048
  3. QUETIAPINE FUMARATE [Concomitant]
     Route: 048
  4. TRYPTOPHAN [Concomitant]
     Route: 048
  5. VENLAFAXINE HYDROCHLORIDE [Concomitant]
     Route: 048

REACTIONS (1)
  - TORTICOLLIS [None]
